FAERS Safety Report 19609631 (Version 1)
Quarter: 2021Q3

REPORT INFORMATION
  Report Type: Spontaneous
  Country: CA (occurrence: CA)
  Receive Date: 20210726
  Receipt Date: 20210726
  Transmission Date: 20211014
  Serious: Yes (Other)
  Sender: FDA-Public Use
  Company Number: CA-TEVA-2021-CA-1934936

PATIENT
  Age: 79 Year
  Sex: Female

DRUGS (3)
  1. ERELZI [Concomitant]
     Active Substance: ETANERCEPT-SZZS
  2. METHOTREXATE. [Suspect]
     Active Substance: METHOTREXATE
     Indication: PRODUCT USED FOR UNKNOWN INDICATION
     Route: 065
  3. PREVNAR 13 [Concomitant]
     Active Substance: PNEUMOCOCCAL 13-VALENT CONJUGATE VACCINE

REACTIONS (2)
  - Pulmonary granuloma [Unknown]
  - Hepatic fibrosis [Unknown]
